FAERS Safety Report 13069991 (Version 2)
Quarter: 2017Q3

REPORT INFORMATION
  Report Type: Spontaneous
  Country: US (occurrence: US)
  Receive Date: 20161228
  Receipt Date: 20170921
  Transmission Date: 20171127
  Serious: Yes (Other)
  Sender: FDA-Public Use
  Company Number: US-PFIZER INC-2016585457

PATIENT
  Age: 34 Year
  Sex: Male
  Weight: 67 kg

DRUGS (1)
  1. BENEFIX [Suspect]
     Active Substance: COAGULATION FACTOR IX RECOMBINANT HUMAN\ISOPROPYL ALCOHOL
     Dosage: UNK

REACTIONS (8)
  - Dizziness [Unknown]
  - Urinary tract infection [Unknown]
  - Fall [Unknown]
  - Pain [Unknown]
  - HIV infection [Unknown]
  - Arthropathy [Unknown]
  - Abdominal pain upper [Unknown]
  - Arthralgia [Unknown]
